FAERS Safety Report 7624499-2 (Version None)
Quarter: 2011Q3

REPORT INFORMATION
  Report Type: 
  Country: None (occurrence: None)
  Receive Date: 20110720
  Receipt Date: 20110707
  Transmission Date: 20111222
  Serious: Yes (Death, Other)
  Sender: FDA-Public Use
  Company Number: US-PFIZER INC-2010000996

PATIENT
  Age: 56 Year
  Sex: Male

DRUGS (13)
  1. METFORMIN HCL [Suspect]
     Dosage: UNK
     Route: 048
     Dates: end: 20080101
  2. TRAZODONE HCL [Suspect]
     Dosage: UNK
     Route: 048
     Dates: end: 20080101
  3. ZOLPIDEM [Suspect]
     Dosage: UNK
     Route: 048
     Dates: end: 20080101
  4. ONDANSETRON HCL [Suspect]
     Dosage: UNK
     Route: 048
     Dates: end: 20080101
  5. METOCLOPRAMIDE [Suspect]
     Dosage: UNK
     Route: 048
     Dates: end: 20080101
  6. METHYLPHENIDATE [Suspect]
     Dosage: UNK
     Route: 048
     Dates: end: 20080101
  7. PREGABALIN [Suspect]
     Dosage: UNK
     Route: 048
     Dates: end: 20080101
  8. QUETIAPINE [Suspect]
     Dosage: UNK
     Route: 048
     Dates: end: 20080101
  9. PHENYTOIN [Suspect]
     Dosage: UNK
     Route: 048
     Dates: end: 20080101
  10. ESCITALOPRAM OXALATE [Suspect]
     Dosage: UNK
     Route: 048
     Dates: end: 20080101
  11. PHENOBARBITAL [Suspect]
     Dosage: UNK
     Route: 048
     Dates: end: 20080101
  12. OXYCODONE [Suspect]
     Dosage: UNK
     Route: 048
     Dates: end: 20080101
  13. EMTRICITABINE/TENOFOVIR DISOPROXIL FUMARATE [Suspect]
     Dosage: UNK
     Route: 048
     Dates: end: 20080101

REACTIONS (1)
  - COMPLETED SUICIDE [None]
